FAERS Safety Report 10526014 (Version 2)
Quarter: 2014Q4

REPORT INFORMATION
  Report Type: Spontaneous
  Country: US (occurrence: US)
  Receive Date: 20141017
  Receipt Date: 20141017
  Transmission Date: 20150528
  Serious: Yes (Hospitalization)
  Sender: FDA-Public Use
  Company Number: US-LUNDBECK-DKLU1093987

PATIENT
  Age: 2 Year
  Sex: Female
  Weight: 22.6 kg

DRUGS (2)
  1. SABRIL [Suspect]
     Active Substance: VIGABATRIN
     Indication: INFANTILE SPASMS
     Route: 048
  2. SABRIL [Suspect]
     Active Substance: VIGABATRIN
     Route: 048

REACTIONS (2)
  - Conjunctivitis [Recovered/Resolved]
  - Infantile spasms [Recovering/Resolving]

NARRATIVE: CASE EVENT DATE: 20130922
